FAERS Safety Report 25660126 (Version 1)
Quarter: 2025Q3

REPORT INFORMATION
  Report Type: Spontaneous
  Country: IN (occurrence: IN)
  Receive Date: 20250808
  Receipt Date: 20250808
  Transmission Date: 20251021
  Serious: Yes (Death, Life-Threatening, Hospitalization)
  Sender: MYLAN
  Company Number: IN-MYLANLABS-2025M1067491

PATIENT
  Age: 50 Year
  Sex: Female

DRUGS (14)
  1. AMLODIPINE [Suspect]
     Active Substance: AMLODIPINE BESYLATE
     Indication: Hypertension
  2. EPINEPHRINE [Suspect]
     Active Substance: EPINEPHRINE
     Indication: Hypotension
     Dosage: 2 MILLIGRAM, QH
     Dates: start: 202303
  3. EPINEPHRINE [Suspect]
     Active Substance: EPINEPHRINE
     Indication: Shock
  4. SODIUM CHLORIDE [Suspect]
     Active Substance: SODIUM CHLORIDE
     Indication: Hypotension
     Dosage: 100 MILLILITER, QH
     Dates: start: 20230324
  5. SODIUM CHLORIDE [Suspect]
     Active Substance: SODIUM CHLORIDE
     Indication: Shock
  6. NOREPINEPHRINE BITARTRATE [Suspect]
     Active Substance: NOREPINEPHRINE BITARTRATE
     Indication: Hypotension
  7. NOREPINEPHRINE BITARTRATE [Suspect]
     Active Substance: NOREPINEPHRINE BITARTRATE
     Indication: Shock
  8. VASOPRESSIN [Suspect]
     Active Substance: VASOPRESSIN
     Indication: Hypotension
  9. VASOPRESSIN [Suspect]
     Active Substance: VASOPRESSIN
     Indication: Shock
  10. CALCIUM GLUCONATE [Suspect]
     Active Substance: CALCIUM GLUCONATE
     Indication: Product used for unknown indication
     Dates: start: 20230324, end: 20230324
  11. CALCIUM GLUCONATE [Suspect]
     Active Substance: CALCIUM GLUCONATE
     Dosage: 1 MILLIGRAM, QH, INFUSION
     Dates: start: 20230324
  12. DEXTROSE [Suspect]
     Active Substance: DEXTROSE MONOHYDRATE
     Indication: Product used for unknown indication
  13. FUROSEMIDE [Suspect]
     Active Substance: FUROSEMIDE
     Indication: Non-cardiogenic pulmonary oedema
  14. SODIUM BICARBONATE [Suspect]
     Active Substance: SODIUM BICARBONATE
     Indication: Metabolic acidosis
     Dosage: 10 MILLIEQUIVALENT, QH, INFUSION
     Dates: start: 202303

REACTIONS (16)
  - Drug ineffective [Fatal]
  - Acute kidney injury [Fatal]
  - Metabolic acidosis [Fatal]
  - Toxicity to various agents [Fatal]
  - Intentional overdose [Fatal]
  - Cardiac arrest [Fatal]
  - Hypotension [Not Recovered/Not Resolved]
  - Shock [Not Recovered/Not Resolved]
  - Non-cardiogenic pulmonary oedema [Not Recovered/Not Resolved]
  - Capillary leak syndrome [Not Recovered/Not Resolved]
  - Dizziness [Not Recovered/Not Resolved]
  - Hyperhidrosis [Not Recovered/Not Resolved]
  - Paraesthesia [Not Recovered/Not Resolved]
  - Hypoaesthesia [Not Recovered/Not Resolved]
  - Confusional state [Not Recovered/Not Resolved]
  - Vomiting [Not Recovered/Not Resolved]

NARRATIVE: CASE EVENT DATE: 20230301
